FAERS Safety Report 4332000-4 (Version None)
Quarter: 2004Q2

REPORT INFORMATION
  Report Type: 
  Country: None (occurrence: None)
  Receive Date: 20040405
  Receipt Date: 20031117
  Transmission Date: 20050107
  Serious: No
  Sender: FDA-Public Use
  Company Number: US-GLAXOSMITHKLINE-A0439992A

PATIENT
  Age: 78 Year
  Sex: Female

DRUGS (14)
  1. SEREVENT [Suspect]
     Dosage: 1PUFF TWICE PER DAY
     Route: 055
  2. PULMICORT [Concomitant]
  3. ATROVENT [Concomitant]
  4. ALBUTEROL [Concomitant]
  5. ALOPURINOL [Concomitant]
  6. DIGOXIN [Concomitant]
  7. LASIX [Concomitant]
  8. ALDACTONE [Concomitant]
  9. ZANTAC [Concomitant]
  10. COLCHICINE [Concomitant]
  11. RELAFEN [Concomitant]
  12. EVISTA [Concomitant]
  13. CLONAZEPAM [Concomitant]
  14. PENTOXIFYLLINE [Concomitant]

REACTIONS (1)
  - DRUG INEFFECTIVE [None]
